FAERS Safety Report 15580040 (Version 1)
Quarter: 2018Q4

REPORT INFORMATION
  Report Type: Spontaneous
  Country: US (occurrence: US)
  Receive Date: 20181102
  Receipt Date: 20181102
  Transmission Date: 20190205
  Serious: No
  Sender: FDA-Public Use
  Company Number: None

PATIENT
  Age: 28 Year
  Sex: Male
  Weight: 57.6 kg

DRUGS (1)
  1. AIMOVIG [Suspect]
     Active Substance: ERENUMAB-AOOE
     Indication: MIGRAINE
     Dosage: ?          QUANTITY:1 INJECTION(S);OTHER FREQUENCY:1 PER MONTH;?
     Route: 058
     Dates: start: 20180928

REACTIONS (4)
  - Nausea [None]
  - Insomnia [None]
  - Influenza like illness [None]
  - Alopecia [None]

NARRATIVE: CASE EVENT DATE: 20180928
